FAERS Safety Report 20207106 (Version 1)
Quarter: 2021Q4

REPORT INFORMATION
  Report Type: Spontaneous
  Country: US (occurrence: None)
  Receive Date: 20211218
  Receipt Date: 20211218
  Transmission Date: 20220303
  Serious: Yes (Hospitalization)
  Sender: FDA-Public Use
  Company Number: None

PATIENT
  Age: 41 Year
  Sex: Male
  Weight: 57.5 kg

DRUGS (4)
  1. CISPLATIN [Suspect]
     Active Substance: CISPLATIN
     Dates: start: 20211204
  2. IFOSFAMIDE [Suspect]
     Active Substance: IFOSFAMIDE
     Dates: start: 20211204
  3. TAXOL [Suspect]
     Active Substance: PACLITAXEL
     Dates: end: 20211130
  4. FILGRASTIM [Suspect]
     Active Substance: FILGRASTIM
     Dates: end: 20211210

REACTIONS (5)
  - Pyrexia [None]
  - Neck pain [None]
  - Haemoglobin decreased [None]
  - White blood cell count decreased [None]
  - C-reactive protein increased [None]

NARRATIVE: CASE EVENT DATE: 20211210
